FAERS Safety Report 7424833-2 (Version None)
Quarter: 2011Q2

REPORT INFORMATION
  Report Type: 
  Country: None (occurrence: None)
  Receive Date: 20110419
  Receipt Date: 20110414
  Transmission Date: 20111010
  Serious: Yes (Hospitalization)
  Sender: FDA-Public Use
  Company Number: US-B.I. PHARMACEUTICALS,INC./RIDGEFIELD-2011-BP-06941BP

PATIENT
  Age: 76 Year
  Sex: Female

DRUGS (7)
  1. AVALIDE [Concomitant]
  2. LASIX [Concomitant]
     Dosage: 40 MG
  3. PRADAXA [Suspect]
  4. ASPIRIN [Concomitant]
  5. SYNTHROID [Concomitant]
  6. POTASSIUM CHLORIDE [Concomitant]
  7. INSULIN [Concomitant]

REACTIONS (4)
  - HAEMATOMA [None]
  - SALIVARY GLAND MASS [None]
  - HAEMORRHAGE [None]
  - SURGERY [None]
